FAERS Safety Report 5694372-8 (Version None)
Quarter: 2008Q2

REPORT INFORMATION
  Report Type: 
  Country: None (occurrence: None)
  Receive Date: 20080404
  Receipt Date: 20080326
  Transmission Date: 20081010
  Serious: Yes (Other)
  Sender: FDA-Public Use
  Company Number: GB-BAYER-200815735GPV

PATIENT
  Age: 52 Year
  Sex: Female

DRUGS (6)
  1. FLUDARABINE [Suspect]
     Indication: ACUTE MYELOID LEUKAEMIA
     Route: 065
  2. CYTARABINE [Suspect]
     Indication: ACUTE MYELOID LEUKAEMIA
     Route: 065
  3. G-CSF [Suspect]
     Indication: ACUTE MYELOID LEUKAEMIA
     Route: 065
  4. AMSACRINE [Suspect]
     Indication: ACUTE MYELOID LEUKAEMIA
     Route: 065
  5. ETOPOSIDE [Suspect]
     Indication: ACUTE MYELOID LEUKAEMIA
     Route: 065
  6. MITOXANTRONE [Suspect]
     Indication: ACUTE MYELOID LEUKAEMIA
     Route: 065

REACTIONS (8)
  - FUNGAL INFECTION [None]
  - HEADACHE [None]
  - NEUTROPENIA [None]
  - PARAESTHESIA [None]
  - SINUSITIS [None]
  - SWELLING FACE [None]
  - VITH NERVE PARALYSIS [None]
  - VTH NERVE INJURY [None]
